FAERS Safety Report 18359438 (Version 1)
Quarter: 2020Q4

REPORT INFORMATION
  Report Type: Spontaneous
  Country: IT (occurrence: IT)
  Receive Date: 20201008
  Receipt Date: 20201008
  Transmission Date: 20210114
  Serious: Yes (Hospitalization)
  Sender: FDA-Public Use
  Company Number: IT-IBIGEN-2020.09372

PATIENT
  Age: 93 Year
  Sex: Male
  Weight: 0 kg

DRUGS (1)
  1. PIPERACILLINA E TAZOBACTAM IBIGEN 2G/0,25G POLVERE PER SOLUZIONE PER I [Suspect]
     Active Substance: PIPERACILLIN SODIUM\TAZOBACTAM SODIUM
     Indication: PNEUMONITIS
     Route: 042
     Dates: start: 20200908, end: 20200921

REACTIONS (2)
  - Thrombocytopenia [Not Recovered/Not Resolved]
  - Pancreatic enzymes increased [Not Recovered/Not Resolved]

NARRATIVE: CASE EVENT DATE: 20200921
